FAERS Safety Report 4742656-X (Version None)
Quarter: 2005Q3

REPORT INFORMATION
  Report Type: 
  Country: None (occurrence: None)
  Receive Date: 20050808
  Receipt Date: 20050727
  Transmission Date: 20060218
  Serious: Yes (Other)
  Sender: FDA-Public Use
  Company Number: US_0508120454

PATIENT
  Sex: Female

DRUGS (1)
  1. FORTEO [Suspect]

REACTIONS (3)
  - HYPERTENSION [None]
  - RENAL CELL CARCINOMA STAGE UNSPECIFIED [None]
  - WEIGHT INCREASED [None]
